FAERS Safety Report 9653654 (Version 1)
Quarter: 2013Q4

REPORT INFORMATION
  Report Type: Report from Study
  Country: US (occurrence: US)
  Receive Date: 20131029
  Receipt Date: 20131029
  Transmission Date: 20140711
  Serious: No
  Sender: FDA-Public Use
  Company Number: US-JNJFOC-20131014490

PATIENT
  Sex: Female

DRUGS (5)
  1. INVEGA SUSTENNA [Suspect]
     Indication: PSYCHOTIC DISORDER
     Route: 030
  2. INVEGA SUSTENNA [Suspect]
     Indication: PSYCHOTIC DISORDER
     Route: 030
  3. ZYPREXA [Suspect]
     Indication: PSYCHOTIC DISORDER
     Route: 048
  4. INVEGA [Suspect]
     Indication: PSYCHOTIC DISORDER
     Route: 048
     Dates: start: 201309
  5. INVEGA [Suspect]
     Indication: PSYCHOTIC DISORDER
     Dosage: 3 MG IN THE MORNING AND 6 MG IN THE EVENING
     Route: 048

REACTIONS (3)
  - Hallucination, auditory [Recovered/Resolved]
  - Anxiety [Unknown]
  - Thought insertion [Unknown]
